FAERS Safety Report 6248475-X (Version None)
Quarter: 2009Q2

REPORT INFORMATION
  Report Type: 
  Country: None (occurrence: None)
  Receive Date: 20090629
  Receipt Date: 20090617
  Transmission Date: 20091009
  Serious: Yes (Hospitalization)
  Sender: FDA-Public Use
  Company Number: GB-ROCHE-636574

PATIENT
  Age: 32 Year
  Sex: Female

DRUGS (4)
  1. MYCOPHENOLATE MOFETIL [Suspect]
     Indication: RENAL TRANSPLANT
     Route: 065
  2. GANCICLOVIR [Suspect]
     Indication: IMMUNOSUPPRESSION
     Route: 042
  3. PREDNISOLONE [Suspect]
     Indication: RENAL TRANSPLANT
     Route: 065
  4. TACROLIMUS [Suspect]
     Indication: RENAL TRANSPLANT
     Route: 065

REACTIONS (4)
  - CHOLECYSTITIS INFECTIVE [None]
  - CYTOMEGALOVIRUS VIRAEMIA [None]
  - GALLBLADDER PERFORATION [None]
  - HAEMOBILIA [None]
